FAERS Safety Report 12189288 (Version 1)
Quarter: 2016Q1

REPORT INFORMATION
  Report Type: Spontaneous
  Country: GB (occurrence: GB)
  Receive Date: 20160317
  Receipt Date: 20160317
  Transmission Date: 20160526
  Serious: Yes (Hospitalization)
  Sender: FDA-Public Use
  Company Number: GB-BAUSCH-BL-2016-006430

PATIENT
  Age: 70 Year
  Sex: Female

DRUGS (4)
  1. PREDNISOLONE. [Suspect]
     Active Substance: PREDNISOLONE
     Indication: IMMUNOSUPPRESSION
     Route: 065
  2. DEXIMUNE [Suspect]
     Active Substance: CYCLOSPORINE
     Route: 065
  3. DEXIMUNE [Suspect]
     Active Substance: CYCLOSPORINE
     Indication: IMMUNOSUPPRESSION
     Route: 065
  4. AZATHIOPRINE. [Suspect]
     Active Substance: AZATHIOPRINE
     Indication: IMMUNOSUPPRESSION
     Route: 065

REACTIONS (5)
  - Groin pain [Unknown]
  - Arthralgia [Unknown]
  - Pulmonary oedema [Unknown]
  - Gait disturbance [Unknown]
  - Heart rate irregular [Unknown]
